FAERS Safety Report 7978771-7 (Version None)
Quarter: 2011Q4

REPORT INFORMATION
  Report Type: 
  Country: None (occurrence: None)
  Receive Date: 20111129
  Receipt Date: 20110826
  Transmission Date: 20120403
  Serious: Yes (Other)
  Sender: FDA-Public Use
  Company Number: PHHY2011US38700

PATIENT
  Age: 31 Year
  Sex: Female

DRUGS (15)
  1. PROGESTERONE [Concomitant]
  2. VITAMIN D [Concomitant]
  3. KLONOPIN [Concomitant]
  4. MULTIVITAMINS (ASCORBIC ACID, ERGOCALCIFEROL, FOLIC ACID, NICOTINAMIDE [Concomitant]
  5. VITAMIN B12 [Concomitant]
  6. BANZEL (RUFINAMIDE) [Concomitant]
  7. POTASSIUM CHLORIDE [Concomitant]
  8. ZINC (ZINC) [Concomitant]
  9. MAGNESIUM (MAGNESIUM) [Concomitant]
  10. AFINITOR [Suspect]
     Indication: TUBEROUS SCLEROSIS
     Dosage: 5 MG, DAILY, ORAL; 7.5 MG, DAILY, ORAL; 10 MG, DAILY, ORAL
     Route: 048
     Dates: start: 20101227
  11. TOPAMAX [Concomitant]
  12. LAMICTAL [Concomitant]
  13. CALCIUM CARBONATE [Concomitant]
  14. DOXEPIN HCL [Concomitant]
  15. GINGER ALE (ZINGIBER OFFICINALE RHIZOME) [Concomitant]

REACTIONS (9)
  - DIARRHOEA [None]
  - FEELING COLD [None]
  - ABDOMINAL DISCOMFORT [None]
  - BLOOD CREATININE INCREASED [None]
  - CONSTIPATION [None]
  - MUSCLE SPASMS [None]
  - ELECTROLYTE DEPLETION [None]
  - NAUSEA [None]
  - CONVULSION [None]
